FAERS Safety Report 5618925-8 (Version None)
Quarter: 2008Q1

REPORT INFORMATION
  Report Type: 
  Country: None (occurrence: None)
  Receive Date: 20080207
  Receipt Date: 20080129
  Transmission Date: 20080703
  Serious: No
  Sender: FDA-Public Use
  Company Number: US-BAXTER-2008BH000457

PATIENT
  Age: 32 Year
  Sex: Female
  Weight: 109 kg

DRUGS (2)
  1. HEPARIN SODIUM [Suspect]
     Indication: THROMBOSIS PROPHYLAXIS
     Route: 040
     Dates: start: 20080105, end: 20080105
  2. HEPARIN SODIUM [Suspect]
     Route: 040
     Dates: start: 20080105, end: 20080105

REACTIONS (4)
  - BLOOD PRESSURE DECREASED [None]
  - FEELING ABNORMAL [None]
  - HYPOAESTHESIA ORAL [None]
  - RESPIRATION ABNORMAL [None]
